FAERS Safety Report 13562354 (Version 1)
Quarter: 2017Q2

REPORT INFORMATION
  Report Type: Report from Study
  Country: US (occurrence: US)
  Receive Date: 20170519
  Receipt Date: 20170519
  Transmission Date: 20170830
  Serious: No
  Sender: FDA-Public Use
  Company Number: PHEH2017US014907

PATIENT
  Sex: Male

DRUGS (1)
  1. COSENTYX [Suspect]
     Active Substance: SECUKINUMAB
     Indication: PRODUCT USED FOR UNKNOWN INDICATION
     Dosage: 2 DF, QW (ADMINISTER TWO SYRINGES (300 MG) UNDER THE SKIN AT WEEKS 0,1,2,3 AND 4)
     Route: 058

REACTIONS (1)
  - Malaise [Unknown]
